FAERS Safety Report 9528980 (Version 1)
Quarter: 2013Q2

REPORT INFORMATION
  Report Type: Spontaneous
  Country: US (occurrence: None)
  Receive Date: 20130401
  Receipt Date: 20130401
  Transmission Date: 20140414
  Serious: Yes (Other)
  Sender: FDA-Public Use
  Company Number: PHEH2013US000646

PATIENT
  Age: 90 Year
  Sex: Female

DRUGS (2)
  1. EXELON PATCH (RIVASTIGMINE) TRANS-THERAPEUTIC SYSTEM [Suspect]
     Route: 062
  2. ARICEPT (DONEPEZIL HYDROCHLORIDE) [Suspect]

REACTIONS (4)
  - Depression [None]
  - Pain in extremity [None]
  - Nightmare [None]
  - Suicidal ideation [None]
